FAERS Safety Report 25135766 (Version 1)
Quarter: 2025Q1

REPORT INFORMATION
  Report Type: Report from Study
  Country: GB (occurrence: GB)
  Receive Date: 20250328
  Receipt Date: 20250328
  Transmission Date: 20250409
  Serious: Yes (Hospitalization)
  Sender: ABBVIE
  Company Number: GB-ABBVIE-6192643

PATIENT
  Sex: Male

DRUGS (1)
  1. SKYRIZI [Suspect]
     Active Substance: RISANKIZUMAB-RZAA
     Indication: Colitis ulcerative
     Dosage: 1.00 EA?FORM STRGETH 360MG/2.4ML
     Route: 058

REACTIONS (2)
  - Large intestinal haemorrhage [Unknown]
  - Therapeutic product effect incomplete [Unknown]
